FAERS Safety Report 6107343-4 (Version None)
Quarter: 2009Q1

REPORT INFORMATION
  Report Type: 
  Country: None (occurrence: None)
  Receive Date: 20090309
  Receipt Date: 20081220
  Transmission Date: 20090719
  Serious: Yes (Other)
  Sender: FDA-Public Use
  Company Number: JP-PFIZER INC-2008155434

PATIENT

DRUGS (9)
  1. CHAMPIX [Suspect]
     Indication: NICOTINE DEPENDENCE
     Dosage: 0.5 MG, 2X/DAY
     Route: 048
     Dates: start: 20081101, end: 20081107
  2. AMLODIPINE [Concomitant]
     Indication: HYPERTENSION
     Dosage: UNK
     Route: 048
     Dates: start: 20060901
  3. KERLONG [Concomitant]
     Indication: HYPERTENSION
     Dosage: UNK
     Route: 048
     Dates: start: 20061005
  4. KERLONG [Concomitant]
     Indication: ANGINA PECTORIS
  5. LOXONIN [Concomitant]
     Indication: BACK PAIN
     Dosage: UNK
     Route: 048
     Dates: start: 20070618
  6. SELBEX [Concomitant]
     Dosage: UNK
     Route: 048
     Dates: start: 20060920
  7. AMLODIPINE BESILATE [Concomitant]
     Indication: HYPERTENSION
     Dates: start: 20080823
  8. NITROGLYCERIN [Concomitant]
     Indication: ANGINA PECTORIS
     Dosage: UNK
     Route: 060
     Dates: start: 20071101
  9. FELBINAC [Concomitant]
     Indication: BACK PAIN
     Dosage: UNK
     Dates: start: 20081028

REACTIONS (4)
  - AMNESIA [None]
  - INSOMNIA [None]
  - LOSS OF CONSCIOUSNESS [None]
  - MALAISE [None]
